FAERS Safety Report 9170294 (Version 2)
Quarter: 2013Q1

REPORT INFORMATION
  Report Type: Spontaneous
  Country: US (occurrence: US)
  Receive Date: 20130319
  Receipt Date: 20130327
  Transmission Date: 20140127
  Serious: No
  Sender: FDA-Public Use
  Company Number: US-009507513-1303USA008621

PATIENT
  Age: 29 Year
  Sex: Female
  Weight: 62.59 kg

DRUGS (9)
  1. NEXPLANON [Suspect]
     Indication: CONTRACEPTION
     Dosage: UNK
     Route: 059
     Dates: start: 20130314
  2. SIMVASTATIN TABLETS, USP [Concomitant]
  3. MAGNESIUM (UNSPECIFIED) [Concomitant]
  4. VITAMINS (UNSPECIFIED) [Concomitant]
  5. CALCIUM SUPPLEMENT [Concomitant]
  6. ELAVIL [Concomitant]
  7. IBUPROFEN [Concomitant]
  8. VALACYCLOVIR HYDROCHLORIDE [Concomitant]
  9. TRAMADOL HYDROCHLORIDE [Concomitant]

REACTIONS (2)
  - Chest pain [Unknown]
  - Implant site bruising [Unknown]
